FAERS Safety Report 13522191 (Version 1)
Quarter: 2017Q2

REPORT INFORMATION
  Report Type: Spontaneous
  Country: CA (occurrence: CA)
  Receive Date: 20170508
  Receipt Date: 20170508
  Transmission Date: 20170830
  Serious: Yes (Hospitalization)
  Sender: FDA-Public Use
  Company Number: CA-GLAXOSMITHKLINE-CA2017GSK058016

PATIENT
  Sex: Female
  Weight: 90 kg

DRUGS (5)
  1. DUAKLIR [Concomitant]
     Indication: PRODUCT USED FOR UNKNOWN INDICATION
     Dosage: UNK
  2. PREDNISONE. [Suspect]
     Active Substance: PREDNISONE
     Indication: PRODUCT USED FOR UNKNOWN INDICATION
     Dosage: 30 MG, UNK
  3. VENTOLIN [Suspect]
     Active Substance: ALBUTEROL SULFATE
     Indication: PRODUCT USED FOR UNKNOWN INDICATION
     Dosage: 10 PUFF(S), 1D
  4. SALBUTAMOL [Suspect]
     Active Substance: ALBUTEROL
     Indication: PRODUCT USED FOR UNKNOWN INDICATION
     Dosage: UNK
  5. ALVESCO [Concomitant]
     Active Substance: CICLESONIDE
     Indication: PRODUCT USED FOR UNKNOWN INDICATION
     Dosage: 2 PUFF(S), TID

REACTIONS (15)
  - Blood glucose increased [Unknown]
  - Stress [Recovering/Resolving]
  - Productive cough [Unknown]
  - Ill-defined disorder [Unknown]
  - Wheezing [Unknown]
  - Gastrooesophageal reflux disease [Unknown]
  - Chest pain [Recovered/Resolved]
  - Upper respiratory tract infection [Recovering/Resolving]
  - Vitamin D deficiency [Unknown]
  - Blood test abnormal [Unknown]
  - Increased appetite [Unknown]
  - Insomnia [Unknown]
  - Dyspnoea [Unknown]
  - Condition aggravated [Unknown]
  - Dyspnoea [Recovered/Resolved]
